FAERS Safety Report 7797258-8 (Version None)
Quarter: 2011Q4

REPORT INFORMATION
  Report Type: 
  Country: None (occurrence: None)
  Receive Date: 20111005
  Receipt Date: 20110930
  Transmission Date: 20120403
  Serious: Yes (Death, Other)
  Sender: FDA-Public Use
  Company Number: PHHY2011BR78497

PATIENT
  Age: 81 Year
  Sex: Male

DRUGS (1)
  1. DIOVAN [Suspect]
     Indication: HYPERTENSION
     Dosage: 2 TABLET (320 MG) DAILY

REACTIONS (5)
  - DEATH [None]
  - DIZZINESS [None]
  - SKIN DISCOLOURATION [None]
  - DEPRESSION [None]
  - ANEURYSM [None]
